FAERS Safety Report 5491465-5 (Version None)
Quarter: 2007Q4

REPORT INFORMATION
  Report Type: 
  Country: None (occurrence: None)
  Receive Date: 20071018
  Receipt Date: 20071015
  Transmission Date: 20080405
  Serious: Yes (Hospitalization)
  Sender: FDA-Public Use
  Company Number: 163-21880-07100767

PATIENT
  Age: 82 Year
  Sex: Male

DRUGS (1)
  1. REVLIMID [Suspect]
     Indication: MULTIPLE MYELOMA
     Dosage: 10-25 MG, DAILY, ORAL
     Route: 048
     Dates: start: 20070914

REACTIONS (3)
  - BLOOD GLUCOSE DECREASED [None]
  - CONVULSION [None]
  - DIABETES MELLITUS [None]
